FAERS Safety Report 14312249 (Version 1)
Quarter: 2017Q4

REPORT INFORMATION
  Report Type: Spontaneous
  Country: NL (occurrence: NL)
  Receive Date: 20171221
  Receipt Date: 20171221
  Transmission Date: 20180321
  Serious: Yes (Other)
  Sender: FDA-Public Use
  Company Number: NL-CIPLA LTD.-2017NL24760

PATIENT

DRUGS (2)
  1. CETIRIZINE [Suspect]
     Active Substance: CETIRIZINE HYDROCHLORIDE
     Indication: ANGIOEDEMA
     Dosage: 20 MG, 10 MG, 2X/DAY (BID)
     Route: 065
     Dates: start: 20171001, end: 20171014
  2. CETIRIZINE [Suspect]
     Active Substance: CETIRIZINE HYDROCHLORIDE
     Indication: OFF LABEL USE
     Dosage: 100 MG, UNK
     Route: 065

REACTIONS (2)
  - Alopecia [Recovered/Resolved]
  - Off label use [Unknown]

NARRATIVE: CASE EVENT DATE: 20171001
